FAERS Safety Report 16565824 (Version 3)
Quarter: 2019Q3

REPORT INFORMATION
  Report Type: Spontaneous
  Country: CA (occurrence: CA)
  Receive Date: 20190712
  Receipt Date: 20190926
  Transmission Date: 20191004
  Serious: Yes (Life-Threatening, Hospitalization, Other)
  Sender: FDA-Public Use
  Company Number: CA-PFIZER INC-2019300771

PATIENT
  Age: 73 Year
  Sex: Female
  Weight: 60 kg

DRUGS (4)
  1. PALBOCICLIB [Suspect]
     Active Substance: PALBOCICLIB
     Indication: BREAST CANCER FEMALE
     Dosage: 125 MG, CYCLIC (DAILY X 21 DAYS, OFF 7 DAYS)
     Route: 048
     Dates: start: 20180507, end: 20190326
  2. ROSUVASTATIN. [Suspect]
     Active Substance: ROSUVASTATIN
     Indication: DYSLIPIDAEMIA
     Dosage: 40 MG, DAILY
     Route: 048
     Dates: end: 20190327
  3. METFORMIN [Concomitant]
     Active Substance: METFORMIN HYDROCHLORIDE
     Indication: DIABETES MELLITUS
     Dosage: 500 MG, 2X/DAY
     Route: 048
     Dates: end: 20190328
  4. CLODRONATE DE SODIUM G GAM [Concomitant]
     Indication: BREAST CANCER FEMALE
     Dosage: 1600 MG, DAILY
     Route: 048
     Dates: start: 20180604, end: 20190328

REACTIONS (35)
  - Blood creatinine increased [Not Recovered/Not Resolved]
  - Lymphocyte count decreased [Unknown]
  - Nucleated red cells [Recovered/Resolved]
  - Red cell distribution width increased [Unknown]
  - Creatinine renal clearance decreased [Unknown]
  - Nausea [Unknown]
  - Blood phosphorus increased [Unknown]
  - Blood albumin decreased [Unknown]
  - Neutrophil count decreased [Recovered/Resolved]
  - Blood urea increased [Unknown]
  - Rhabdomyolysis [Recovered/Resolved with Sequelae]
  - Hyperkalaemia [Unknown]
  - Decreased appetite [Unknown]
  - Haematocrit decreased [Unknown]
  - White blood cell count decreased [Recovered/Resolved]
  - Cellulitis [Unknown]
  - Anaemia [Unknown]
  - Aspartate aminotransferase increased [Unknown]
  - Haemoglobin decreased [Unknown]
  - Blood lactate dehydrogenase increased [Unknown]
  - Chronic kidney disease [Not Recovered/Not Resolved]
  - Vomiting [Unknown]
  - Constipation [Unknown]
  - Fluid overload [Unknown]
  - Blood urea increased [Unknown]
  - Blood creatine phosphokinase increased [Unknown]
  - Glomerular filtration rate increased [Unknown]
  - Red blood cell count decreased [Unknown]
  - Alanine aminotransferase increased [Unknown]
  - Blood calcium increased [Unknown]
  - Mean cell volume abnormal [Recovered/Resolved]
  - Platelet count decreased [Unknown]
  - Differential white blood cell count abnormal [Recovered/Resolved]
  - Blood alkaline phosphatase increased [Unknown]
  - C-reactive protein increased [Unknown]

NARRATIVE: CASE EVENT DATE: 20181015
